FAERS Safety Report 5110718-3 (Version None)
Quarter: 2006Q3

REPORT INFORMATION
  Report Type: 
  Country: None (occurrence: None)
  Receive Date: 20060918
  Receipt Date: 20060906
  Transmission Date: 20061208
  Serious: Yes (Other)
  Sender: FDA-Public Use
  Company Number: HQWYE490108SEP06

PATIENT
  Age: 59 Year
  Sex: Female

DRUGS (3)
  1. EFFEXOR [Suspect]
     Dosage: 150 MG 1X PER 1 DAY, ORAL
     Route: 048
     Dates: start: 19960101
  2. KLONOPIN [Concomitant]
  3. ESTROGEN NOS (ESROGEN NOS) [Concomitant]

REACTIONS (4)
  - BREATH SOUNDS ABNORMAL [None]
  - CHEST DISCOMFORT [None]
  - COUGH [None]
  - MYCOBACTERIUM AVIUM COMPLEX INFECTION [None]
